FAERS Safety Report 13537987 (Version 1)
Quarter: 2017Q2

REPORT INFORMATION
  Report Type: Report from Study
  Country: None (occurrence: BR)
  Receive Date: 20170511
  Receipt Date: 20170511
  Transmission Date: 20170830
  Serious: Yes (Other)
  Sender: FDA-Public Use
  Company Number: BR-ABBVIE-17K-020-1967256-00

PATIENT
  Age: 52 Year
  Sex: Male
  Weight: 74 kg

DRUGS (6)
  1. CORTICORTEN [Concomitant]
     Indication: SPONDYLITIS
     Route: 048
     Dates: start: 201612
  2. CORTICORTEN [Concomitant]
     Indication: UVEITIS
  3. ATACAND [Concomitant]
     Active Substance: CANDESARTAN CILEXETIL
     Indication: BLOOD PRESSURE ABNORMAL
     Route: 048
  4. IBUPROFEN. [Concomitant]
     Active Substance: IBUPROFEN
     Indication: PAIN
     Dosage: 1 IN 1
     Route: 048
     Dates: start: 201701
  5. HUMIRA [Suspect]
     Active Substance: ADALIMUMAB
     Indication: ANKYLOSING SPONDYLITIS
     Route: 058
     Dates: start: 20130101, end: 201612
  6. FLANCOX [Concomitant]
     Active Substance: ETODOLAC
     Indication: PAIN
     Route: 048
     Dates: start: 201612

REACTIONS (5)
  - Gastritis [Recovering/Resolving]
  - Vitamin D deficiency [Unknown]
  - Therapeutic response shortened [Not Recovered/Not Resolved]
  - Pain [Not Recovered/Not Resolved]
  - Uveitis [Recovering/Resolving]

NARRATIVE: CASE EVENT DATE: 201611
